FAERS Safety Report 9292449 (Version 1)
Quarter: 2013Q2

REPORT INFORMATION
  Report Type: Spontaneous
  Country: BR (occurrence: BR)
  Receive Date: 20130516
  Receipt Date: 20130516
  Transmission Date: 20140414
  Serious: Yes (Hospitalization, Other)
  Sender: FDA-Public Use
  Company Number: BR-PFIZER INC-2013147944

PATIENT
  Age: 56 Year
  Sex: Male
  Weight: 66 kg

DRUGS (4)
  1. LYRICA [Suspect]
     Dosage: 75 MG, 1X/DAY
     Route: 048
     Dates: start: 20130213
  2. CIPROFLOXACIN HYDROCHLORIDE [Concomitant]
     Dosage: TWO TABLETS DAILY
     Dates: start: 201303
  3. DIOVAN [Concomitant]
     Indication: CARDIAC DISORDER
     Dosage: ONE TABLET, ONCE DAILY
     Dates: start: 2011
  4. TRAMADOL [Concomitant]
     Indication: PAIN
     Dosage: ONE TABLET, ONCE DAILY
     Dates: start: 201304

REACTIONS (4)
  - Intervertebral disc protrusion [Unknown]
  - Spinal disorder [Unknown]
  - Nosocomial infection [Unknown]
  - Joint dislocation [Unknown]
